FAERS Safety Report 5557963-0 (Version None)
Quarter: 2007Q4

REPORT INFORMATION
  Report Type: 
  Country: None (occurrence: None)
  Receive Date: 20071214
  Receipt Date: 20071206
  Transmission Date: 20080405
  Serious: Yes (Other)
  Sender: FDA-Public Use
  Company Number: PHEH2007US14472

PATIENT
  Age: 66 Year
  Sex: Female

DRUGS (3)
  1. VERAPAMIL [Suspect]
     Indication: HYPERTENSION
     Dosage: 240 MG, UNK
  2. PRINIVIL [Suspect]
     Indication: HYPERTENSION
     Dosage: 20 MG, UNK
  3. ESIDRIX [Suspect]
     Indication: HYPERTENSION
     Dosage: 25 MG, QD
     Route: 048

REACTIONS (2)
  - BLOOD PRESSURE FLUCTUATION [None]
  - DIABETES MELLITUS [None]
